FAERS Safety Report 15907565 (Version 1)
Quarter: 2019Q1

REPORT INFORMATION
  Report Type: Spontaneous
  Country: IT (occurrence: IT)
  Receive Date: 20190204
  Receipt Date: 20190204
  Transmission Date: 20190417
  Serious: Yes (Other)
  Sender: FDA-Public Use
  Company Number: IT-BAYER-2019-021892

PATIENT
  Age: 79 Year
  Sex: Female
  Weight: 60 kg

DRUGS (1)
  1. ULTRAVIST [Suspect]
     Active Substance: IOPROMIDE
     Indication: COMPUTERISED TOMOGRAM
     Dosage: 90 ML, ONCE
     Route: 042

REACTIONS (2)
  - Loss of consciousness [Unknown]
  - Clonus [Unknown]

NARRATIVE: CASE EVENT DATE: 20190110
